FAERS Safety Report 5432319-X (Version None)
Quarter: 2007Q3

REPORT INFORMATION
  Report Type: 
  Country: None (occurrence: None)
  Receive Date: 20070831
  Receipt Date: 20070822
  Transmission Date: 20080115
  Serious: Yes (Hospitalization, Other)
  Sender: FDA-Public Use
  Company Number: US-JNJFOC-20040607911

PATIENT
  Sex: Female

DRUGS (9)
  1. INFLIXIMAB [Suspect]
     Route: 042
  2. INFLIXIMAB [Suspect]
     Indication: RHEUMATOID ARTHRITIS
     Route: 042
  3. SYNTHROID [Concomitant]
  4. ENBREL [Concomitant]
     Route: 058
  5. PREDNISONE [Concomitant]
  6. VIOXX [Concomitant]
  7. CALCIUM [Concomitant]
  8. ALEVE [Concomitant]
  9. MULTI-VITAMIN [Concomitant]

REACTIONS (7)
  - ANAEMIA [None]
  - ENDOMETRIAL SARCOMA [None]
  - HAEMATOCRIT DECREASED [None]
  - HAEMOGLOBIN DECREASED [None]
  - PLEURAL EFFUSION [None]
  - PYREXIA [None]
  - WHITE BLOOD CELL COUNT INCREASED [None]
